FAERS Safety Report 5713788-4 (Version None)
Quarter: 2008Q2

REPORT INFORMATION
  Report Type: 
  Country: None (occurrence: None)
  Receive Date: 20080421
  Receipt Date: 20080411
  Transmission Date: 20081010
  Serious: Yes (Death)
  Sender: FDA-Public Use
  Company Number: 2008US000621

PATIENT
  Age: 86 Year
  Sex: Male

DRUGS (17)
  1. PROGRAF [Suspect]
     Indication: LIVER TRANSPLANT
     Dosage: 1 MG, BID, ORAL
     Route: 048
     Dates: start: 19990101
  2. RESTORIL [Concomitant]
  3. ZOFRAN [Concomitant]
  4. ATENOLOL [Concomitant]
  5. PRILOSEC [Concomitant]
  6. DULCOLAX [Concomitant]
  7. CELEXA [Concomitant]
  8. SODIUM BICARBONATE IN PLASTIC CONTAINER [Concomitant]
  9. REGLAN [Concomitant]
  10. MEGACE [Concomitant]
  11. HYDRALAZINE HCL [Concomitant]
  12. CIPRO [Concomitant]
  13. LORTAB [Concomitant]
  14. LEVEMIR (INSULIN DETEMIR) [Concomitant]
  15. NOVOLOG [Concomitant]
  16. IRON W/VITAMIN C (ASCORBIC ACID, IRON) [Concomitant]
  17. NEPHRO DRINK [Concomitant]

REACTIONS (1)
  - BLADDER CANCER [None]
